FAERS Safety Report 8407546-X (Version None)
Quarter: 2012Q2

REPORT INFORMATION
  Report Type: 
  Country: None (occurrence: None)
  Receive Date: 20120604
  Receipt Date: 20120524
  Transmission Date: 20120825
  Serious: Yes (Hospitalization)
  Sender: FDA-Public Use
  Company Number: CA-JNJFOC-20120520716

PATIENT
  Sex: Male
  Weight: 91 kg

DRUGS (3)
  1. SCOPOLAMINE [Concomitant]
     Route: 065
  2. REMICADE [Suspect]
     Indication: CROHN'S DISEASE
     Route: 042
     Dates: start: 20091001
  3. TYLENOL W/ CODEINE NO. 3 [Concomitant]
     Route: 065

REACTIONS (2)
  - HEAD INJURY [None]
  - PHYSICAL ASSAULT [None]
